FAERS Safety Report 19306157 (Version 2)
Quarter: 2021Q3

REPORT INFORMATION
  Report Type: Report from Study
  Country: KR (occurrence: KR)
  Receive Date: 20210526
  Receipt Date: 20210929
  Transmission Date: 20211014
  Serious: Yes (Hospitalization)
  Sender: FDA-Public Use
  Company Number: KR-ROCHE-2832171

PATIENT
  Age: 62 Year
  Sex: Male
  Weight: 51.2 kg

DRUGS (4)
  1. ATEZOLIZUMAB. [Suspect]
     Active Substance: ATEZOLIZUMAB
     Indication: OESOPHAGEAL CARCINOMA
     Dosage: START DATE OF MOST RECENT DOSE OF STUDY DRUG PRIOR TO AE: 12/MAY/2021
     Route: 041
     Dates: start: 20210512
  2. TIRAGOLUMAB. [Suspect]
     Active Substance: TIRAGOLUMAB
     Indication: OESOPHAGEAL CARCINOMA
     Dosage: START DATE OF MOST RECENT DOSE OF STUDY DRUG PRIOR TO AE: 12/MAY/2021
     Route: 042
     Dates: start: 20210512
  3. CISPLATIN. [Suspect]
     Active Substance: CISPLATIN
     Indication: OESOPHAGEAL CARCINOMA
     Dosage: START DATE OF MOST RECENT DOSE (120.8 MG) OF STUDY DRUG PRIOR TO AE: 12/MAY/2021
     Route: 042
     Dates: start: 20210512
  4. 5?FLUOROURACIL [Suspect]
     Active Substance: FLUOROURACIL
     Indication: OESOPHAGEAL CARCINOMA
     Dosage: START DATE OF MOST RECENT DOSE OF STUDY DRUG PRIOR TO AE: 12/MAY/2021
     Route: 042
     Dates: start: 20210512

REACTIONS (1)
  - Hyponatraemia [Recovered/Resolved]

NARRATIVE: CASE EVENT DATE: 20210515
